FAERS Safety Report 19417982 (Version 3)
Quarter: 2022Q2

REPORT INFORMATION
  Report Type: Spontaneous
  Country: US (occurrence: US)
  Receive Date: 20210615
  Receipt Date: 20220509
  Transmission Date: 20220721
  Serious: No
  Sender: FDA-Public Use
  Company Number: US-PFIZER INC-2019153278

PATIENT
  Age: 85 Year
  Sex: Female
  Weight: 56.689 kg

DRUGS (1)
  1. XALATAN [Suspect]
     Active Substance: LATANOPROST
     Indication: Glaucoma
     Dosage: 1 DROP, 1X/DAY (125 MCG PER 2.5 ML AND SHE USES ONE DROP EACH EYE AT BED TIME)
     Route: 047

REACTIONS (1)
  - Hypoacusis [Unknown]
